FAERS Safety Report 4392178-3 (Version None)
Quarter: 2004Q3

REPORT INFORMATION
  Report Type: 
  Country: None (occurrence: None)
  Receive Date: 20040702
  Receipt Date: 20040330
  Transmission Date: 20050211
  Serious: Yes (Other)
  Sender: FDA-Public Use
  Company Number: 2004UW06300

PATIENT
  Sex: Female

DRUGS (2)
  1. CRESTOR [Suspect]
     Dosage: 10 MG PO
     Route: 048
     Dates: start: 20040201
  2. BLOOD PRESSURE MEDICATION [Concomitant]

REACTIONS (4)
  - CHANGE OF BOWEL HABIT [None]
  - DYSPEPSIA [None]
  - HYPERTENSION [None]
  - NAUSEA [None]
